FAERS Safety Report 4342153-X (Version None)
Quarter: 2004Q1

REPORT INFORMATION
  Report Type: 
  Country: None (occurrence: None)
  Receive Date: 20040329
  Receipt Date: 20040216
  Transmission Date: 20041129
  Serious: No
  Sender: FDA-Public Use
  Company Number: 04P-163-0250411

PATIENT
  Age: 70 Year
  Sex: Female
  Weight: 58.9676 kg

DRUGS (8)
  1. HUMIRA [Suspect]
     Indication: RHEUMATOID ARTHRITIS
     Dosage: 40 MG, 1 IN 2 WK, SUBCUTANEOUS
     Route: 058
     Dates: start: 20040106
  2. ATORVASTATIN [Concomitant]
  3. LOTREL [Concomitant]
  4. FOLIC ACID [Concomitant]
  5. METHOTREXATE [Concomitant]
  6. MULTI-VITAMINS [Concomitant]
  7. TOCOPHEROL CONCENTRATE CAP [Concomitant]
  8. MAGNESIUM [Concomitant]

REACTIONS (2)
  - INFLUENZA LIKE ILLNESS [None]
  - URINARY TRACT INFECTION [None]
